FAERS Safety Report 5474535-7 (Version None)
Quarter: 2007Q4

REPORT INFORMATION
  Report Type: 
  Country: None (occurrence: None)
  Receive Date: 20071002
  Receipt Date: 20070925
  Transmission Date: 20080405
  Serious: Yes (Hospitalization)
  Sender: FDA-Public Use
  Company Number: US-ELI_LILLY_AND_COMPANY-US200709005893

PATIENT
  Sex: Male

DRUGS (1)
  1. ZYPREXA [Suspect]

REACTIONS (5)
  - ESCHERICHIA INFECTION [None]
  - FALL [None]
  - HAEMORRHAGE [None]
  - PARKINSON'S DISEASE [None]
  - PNEUMONIA [None]
